FAERS Safety Report 11121650 (Version 1)
Quarter: 2015Q2

REPORT INFORMATION
  Report Type: Report from Study
  Country: RU (occurrence: RU)
  Receive Date: 20150519
  Receipt Date: 20150519
  Transmission Date: 20150821
  Serious: Yes (Death, Life-Threatening, Hospitalization, Other)
  Sender: FDA-Public Use
  Company Number: RU-PRONOVA-130521

PATIENT
  Age: 51 Year
  Sex: Male

DRUGS (8)
  1. ACETYLSALICYLIC ACID [Concomitant]
     Active Substance: ASPIRIN
     Route: 048
     Dates: start: 20120906, end: 20131229
  2. PERINDOPRIL [Concomitant]
     Active Substance: PERINDOPRIL
     Dates: start: 20120909, end: 20131229
  3. CISPLATIN. [Concomitant]
     Active Substance: CISPLATIN
     Route: 042
     Dates: start: 20131005, end: 20131211
  4. ETOPOSIDE. [Concomitant]
     Active Substance: ETOPOSIDE
     Route: 042
     Dates: start: 20131005, end: 20131211
  5. OMEGA-3-ACID ETHYL ESTERS. [Suspect]
     Active Substance: OMEGA-3-ACID ETHYL ESTERS
     Indication: MYOCARDIAL INFARCTION
     Dosage: 1000 MG, QD
     Route: 048
     Dates: start: 20121206, end: 20131229
  6. BISOPROLOL [Concomitant]
     Active Substance: BISOPROLOL
     Indication: ARRHYTHMIA
     Route: 048
     Dates: start: 20120906, end: 20131229
  7. CLOPIDOGREL [Concomitant]
     Active Substance: CLOPIDOGREL BISULFATE
     Route: 048
     Dates: start: 20120906, end: 20131229
  8. ROSUVASTATIN [Concomitant]
     Active Substance: ROSUVASTATIN
     Route: 048
     Dates: start: 20120906, end: 20131229

REACTIONS (3)
  - Bronchial haemorrhage [Fatal]
  - Atrial fibrillation [Recovered/Resolved]
  - Lung neoplasm malignant [Fatal]

NARRATIVE: CASE EVENT DATE: 20131005
